FAERS Safety Report 19949030 (Version 1)
Quarter: 2021Q4

REPORT INFORMATION
  Report Type: Spontaneous
  Country: DK (occurrence: DK)
  Receive Date: 20211013
  Receipt Date: 20211013
  Transmission Date: 20220303
  Serious: Yes (Hospitalization)
  Sender: FDA-Public Use
  Company Number: DK-STRIDES ARCOLAB LIMITED-2021SP028567

PATIENT
  Age: 66 Year
  Sex: Female

DRUGS (6)
  1. ITRACONAZOLE [Suspect]
     Active Substance: ITRACONAZOLE
     Indication: Onychomycosis
     Dosage: 200 MILLIGRAM PER DAY
     Route: 048
  2. ITRACONAZOLE [Suspect]
     Active Substance: ITRACONAZOLE
     Indication: Trichophytosis
     Dosage: 100 MILLIGRAM, BID
     Route: 048
     Dates: start: 201909, end: 202004
  3. TERBINAFINE [Concomitant]
     Active Substance: TERBINAFINE
     Indication: Onychomycosis
     Dosage: UNK
     Route: 048
  4. TERBINAFINE [Concomitant]
     Active Substance: TERBINAFINE
     Indication: Trichophytosis
  5. AMOROLFINE [Concomitant]
     Active Substance: AMOROLFINE
     Indication: Onychomycosis
     Dosage: UNK, NAIL VARNISH
     Route: 065
  6. AMOROLFINE [Concomitant]
     Active Substance: AMOROLFINE
     Indication: Trichophytosis

REACTIONS (1)
  - Pseudoaldosteronism [Recovered/Resolved]

NARRATIVE: CASE EVENT DATE: 20200401
